FAERS Safety Report 7214810-9 (Version None)
Quarter: 2011Q1

REPORT INFORMATION
  Report Type: 
  Country: None (occurrence: None)
  Receive Date: 20110107
  Receipt Date: 20100309
  Transmission Date: 20110831
  Serious: No
  Sender: FDA-Public Use
  Company Number: A0849183A

PATIENT
  Age: 75 Year
  Sex: Female

DRUGS (6)
  1. PRAVACHOL [Concomitant]
  2. PRILOSEC [Concomitant]
  3. LOVAZA [Suspect]
     Dosage: 1CAP FOUR TIMES PER DAY
     Route: 048
     Dates: start: 20100302
  4. ASPIRIN [Concomitant]
  5. BENICAR [Concomitant]
  6. BYSTOLIC [Concomitant]

REACTIONS (2)
  - FATIGUE [None]
  - FLATULENCE [None]
